FAERS Safety Report 9450047 (Version 1)
Quarter: 2013Q3

REPORT INFORMATION
  Report Type: Spontaneous
  Country: BR (occurrence: BR)
  Receive Date: 20130809
  Receipt Date: 20130809
  Transmission Date: 20140515
  Serious: Yes (Hospitalization)
  Sender: FDA-Public Use
  Company Number: BR-SANOFI-AVENTIS-2013SA078296

PATIENT
  Age: 87 Year
  Sex: Male
  Weight: 68 kg

DRUGS (4)
  1. LANTUS [Suspect]
     Indication: DIABETES MELLITUS
     Route: 058
     Dates: start: 2003
  2. LANTUS [Suspect]
     Indication: DIABETES MELLITUS
     Route: 058
  3. CLIKSTAR [Concomitant]
     Indication: DEVICE THERAPY
  4. SOLOSTAR [Concomitant]
     Indication: DEVICE THERAPY
     Dates: start: 2003

REACTIONS (4)
  - Malaise [Recovered/Resolved]
  - Weight decreased [Recovered/Resolved]
  - Decreased appetite [Recovered/Resolved]
  - Thirst [Recovered/Resolved]
